FAERS Safety Report 8837934 (Version 2)
Quarter: 2015Q3

REPORT INFORMATION
  Report Type: Report from Study
  Country: US (occurrence: US)
  Receive Date: 20121012
  Receipt Date: 20150824
  Transmission Date: 20151125
  Serious: Yes (Hospitalization)
  Sender: FDA-Public Use
  Company Number: US-ROCHE-1120276

PATIENT
  Sex: Male

DRUGS (6)
  1. PROTROPIN [Suspect]
     Active Substance: SOMATREM
     Route: 058
  2. NUTROPIN [Suspect]
     Active Substance: SOMATROPIN
     Indication: DWARFISM
     Route: 065
  3. PROTROPIN [Suspect]
     Active Substance: SOMATREM
     Route: 058
  4. PROTROPIN [Suspect]
     Active Substance: SOMATREM
     Indication: DWARFISM
     Route: 058
     Dates: start: 19920403
  5. PROTROPIN [Suspect]
     Active Substance: SOMATREM
     Route: 058
  6. PROTROPIN [Suspect]
     Active Substance: SOMATREM
     Route: 058

REACTIONS (5)
  - Skin hypopigmentation [Unknown]
  - Immune thrombocytopenic purpura [Unknown]
  - Drug hypersensitivity [Unknown]
  - Bronchitis [Unknown]
  - Contusion [Unknown]
